FAERS Safety Report 4874534-X (Version None)
Quarter: 2006Q1

REPORT INFORMATION
  Report Type: 
  Country: None (occurrence: None)
  Receive Date: 20060106
  Receipt Date: 20051228
  Transmission Date: 20060701
  Serious: Yes (Life-Threatening, Hospitalization)
  Sender: FDA-Public Use
  Company Number: US-BRISTOL-MYERS SQUIBB COMPANY-13231139

PATIENT
  Age: 72 Year
  Sex: Male
  Weight: 101 kg

DRUGS (8)
  1. COUMADIN [Suspect]
  2. LISINOPRIL [Interacting]
  3. FUROSEMIDE [Interacting]
  4. COREG [Interacting]
     Indication: CARDIAC DISORDER
     Route: 048
     Dates: start: 20050805, end: 20050901
  5. AMIODARONE HCL [Suspect]
  6. AMLODIPINE [Interacting]
  7. ATORVASTATIN [Suspect]
  8. POTASSIUM SALTS [Interacting]

REACTIONS (14)
  - ASTHENIA [None]
  - DEPRESSED LEVEL OF CONSCIOUSNESS [None]
  - DIZZINESS [None]
  - DRUG INTERACTION [None]
  - DYSPNOEA [None]
  - EXERCISE TOLERANCE DECREASED [None]
  - FOAMING AT MOUTH [None]
  - HEADACHE [None]
  - HEART RATE DECREASED [None]
  - HYPOTENSION [None]
  - LOSS OF CONSCIOUSNESS [None]
  - NAUSEA [None]
  - SYNCOPE [None]
  - VERTIGO [None]
